FAERS Safety Report 23756168 (Version 1)
Quarter: 2024Q2

REPORT INFORMATION
  Report Type: Spontaneous
  Country: US (occurrence: None)
  Receive Date: 20240418
  Receipt Date: 20240418
  Transmission Date: 20240716
  Serious: Yes (Hospitalization)
  Sender: FDA-Public Use
  Company Number: None

PATIENT
  Age: 91 Year
  Sex: Male
  Weight: 47.6 kg

DRUGS (1)
  1. PACERONE [Suspect]
     Active Substance: AMIODARONE HYDROCHLORIDE
     Indication: Atrial fibrillation
     Dosage: FREQUENCY : DAILY;?
     Route: 048
     Dates: end: 20240224

REACTIONS (5)
  - Cardiac failure acute [None]
  - Bradycardia [None]
  - Hypoglycaemia [None]
  - Hypothermia [None]
  - Hypothyroidism [None]

NARRATIVE: CASE EVENT DATE: 20240224
